FAERS Safety Report 24358952 (Version 1)
Quarter: 2024Q3

REPORT INFORMATION
  Report Type: Spontaneous
  Country: US (occurrence: US)
  Receive Date: 20240924
  Receipt Date: 20240924
  Transmission Date: 20241017
  Serious: No
  Sender: SUNOVION
  Company Number: US-SMPA-2024SPA002202AA

PATIENT

DRUGS (2)
  1. ORGOVYX [Suspect]
     Active Substance: RELUGOLIX
     Indication: Prostate cancer
     Dosage: 120 MG, QD
     Route: 048
     Dates: start: 20230404
  2. ORGOVYX [Suspect]
     Active Substance: RELUGOLIX
     Dosage: 360 MG, TAKEN PRIOR TO BIOLOGICS
     Route: 048

REACTIONS (2)
  - Glycosylated haemoglobin increased [Unknown]
  - Product dose omission issue [Unknown]
